FAERS Safety Report 21582471 (Version 1)
Quarter: 2022Q4

REPORT INFORMATION
  Report Type: Spontaneous
  Country: US (occurrence: US)
  Receive Date: 20221111
  Receipt Date: 20221111
  Transmission Date: 20230112
  Serious: No
  Sender: FDA-Public Use
  Company Number: US-BIOCON RESEARCH LIMITED-BCN-2022-001165

PATIENT
  Age: 64 Year
  Sex: Female
  Weight: 56.750 kg

DRUGS (3)
  1. EVEROLIMUS [Suspect]
     Active Substance: EVEROLIMUS
     Indication: Breast cancer metastatic
     Dates: start: 20221003, end: 202210
  2. EVEROLIMUS [Suspect]
     Active Substance: EVEROLIMUS
     Dosage: DRUG INTERRUPTED FOR 5 DAYS
     Dates: start: 20221031
  3. LYNPARZA [Concomitant]
     Active Substance: OLAPARIB
     Indication: Product used for unknown indication

REACTIONS (1)
  - Stomatitis [Recovering/Resolving]

NARRATIVE: CASE EVENT DATE: 20221017
